FAERS Safety Report 22597711 (Version 3)
Quarter: 2023Q2

REPORT INFORMATION
  Report Type: Spontaneous
  Country: FR (occurrence: FR)
  Receive Date: 20230614
  Receipt Date: 20230616
  Transmission Date: 20230721
  Serious: Yes (Death, Other)
  Sender: FDA-Public Use
  Company Number: None

PATIENT
  Age: 86 Year
  Sex: Male
  Weight: 76 kg

DRUGS (11)
  1. TAMSULOSIN HYDROCHLORIDE [Suspect]
     Active Substance: TAMSULOSIN HYDROCHLORIDE
     Indication: Product used for unknown indication
     Dosage: 1 DF, TOTAL
     Route: 048
  2. MOLSIDOMINE [Suspect]
     Active Substance: MOLSIDOMINE
     Indication: Prescription drug used without a prescription
     Dosage: 1 DF, TOTAL
     Route: 048
     Dates: start: 20220530, end: 20220530
  3. BISOPROLOL FUMARATE [Suspect]
     Active Substance: BISOPROLOL FUMARATE
     Indication: Product used for unknown indication
     Dosage: 1 DF, TOTAL; 1.25 MG
     Route: 048
  4. ACETAMINOPHEN [Suspect]
     Active Substance: ACETAMINOPHEN
     Indication: Prescription drug used without a prescription
     Dosage: 1 DF, TOTAL
     Route: 048
     Dates: start: 20220530, end: 20220530
  5. EZETIMIBE [Suspect]
     Active Substance: EZETIMIBE
     Indication: Product used for unknown indication
     Dosage: 1 DF, TOTAL
     Route: 048
  6. APIXABAN [Suspect]
     Active Substance: APIXABAN
     Indication: Product used for unknown indication
     Dosage: 1 DF, TOTAL
     Route: 048
  7. PANTOPRAZOLE [Suspect]
     Active Substance: PANTOPRAZOLE
     Indication: Prescription drug used without a prescription
     Dosage: 1 DF, TOTAL
     Route: 048
     Dates: start: 20220530, end: 20220530
  8. VERAPAMIL HYDROCHLORIDE [Suspect]
     Active Substance: VERAPAMIL HYDROCHLORIDE
     Indication: Prescription drug used without a prescription
     Dosage: 1 DF, TOTAL; 240 MG LP
     Route: 048
     Dates: start: 20220530, end: 20220530
  9. LAMALINE (ACETAMINOPHEN\CAFFEINE\OPIUM) [Suspect]
     Active Substance: ACETAMINOPHEN\CAFFEINE\OPIUM
     Indication: Prescription drug used without a prescription
     Dosage: 1 DF, TOTAL
     Route: 048
     Dates: start: 20220530, end: 20220530
  10. MIANSERIN HYDROCHLORIDE [Suspect]
     Active Substance: MIANSERIN HYDROCHLORIDE
     Indication: Prescription drug used without a prescription
     Dosage: 1 DF, TOTAL
     Route: 048
     Dates: start: 20220530, end: 20220530
  11. LIPTRUZET [Suspect]
     Active Substance: ATORVASTATIN CALCIUM\EZETIMIBE
     Indication: Product used for unknown indication
     Dosage: 1 DF, TOTAL
     Route: 048
     Dates: end: 20220530

REACTIONS (4)
  - Sudden death [Fatal]
  - Restlessness [Unknown]
  - Prescription drug used without a prescription [Fatal]
  - Sleep disorder [Unknown]

NARRATIVE: CASE EVENT DATE: 20220530
